FAERS Safety Report 7971810-9 (Version None)
Quarter: 2011Q4

REPORT INFORMATION
  Report Type: 
  Country: None (occurrence: None)
  Receive Date: 20111212
  Receipt Date: 20111202
  Transmission Date: 20120403
  Serious: Yes (Hospitalization)
  Sender: FDA-Public Use
  Company Number: FR-ASTRAZENECA-2011SE73228

PATIENT
  Sex: Male

DRUGS (5)
  1. QUETIAPINE FUMARATE [Suspect]
     Indication: BIPOLAR DISORDER
     Dosage: LONG LASTING
     Route: 048
  2. QUETIAPINE FUMARATE [Suspect]
     Route: 048
     Dates: start: 20111102
  3. LOXAPINE HCL [Suspect]
     Route: 065
     Dates: end: 20111202
  4. MIRTAZAPINE [Suspect]
     Route: 065
     Dates: end: 20111202
  5. QUETIAPINE FUMARATE [Suspect]
     Dosage: DOSE HIGHER THAN 700MG PER DAY
     Route: 048
     Dates: end: 20111102

REACTIONS (2)
  - TUBULOINTERSTITIAL NEPHRITIS [None]
  - INCORRECT DOSE ADMINISTERED [None]
